FAERS Safety Report 7043838-7 (Version None)
Quarter: 2010Q4

REPORT INFORMATION
  Report Type: 
  Country: None (occurrence: None)
  Receive Date: 20101013
  Receipt Date: 20101008
  Transmission Date: 20110411
  Serious: Yes (Hospitalization)
  Sender: FDA-Public Use
  Company Number: FR-PFIZER INC-2010127903

PATIENT
  Age: 74 Year
  Sex: Female

DRUGS (9)
  1. AMLODIPINE [Suspect]
     Dosage: 5 MG, 1X/DAY
     Route: 048
  2. URBANYL [Interacting]
     Indication: PARTIAL SEIZURES
     Dosage: 10 MG, 2X/DAY
     Route: 048
     Dates: start: 20100821
  3. TEMESTA [Interacting]
     Dosage: 1 MG, 1X/DAY
     Route: 048
  4. TRIATEC [Interacting]
     Dosage: 5 MG, 1X/DAY
     Route: 048
  5. ESIDRIX [Interacting]
     Dosage: 25 MG, 1X/DAY
     Route: 048
  6. TEGRETOL [Interacting]
     Indication: PARTIAL SEIZURES
     Dosage: 200 MG, 3X/DAY
     Route: 048
  7. TAHOR [Concomitant]
     Dosage: 20 MG, 1X/DAY
     Route: 048
  8. KARDEGIC [Concomitant]
     Dosage: 75 MG, 1X/DAY
     Route: 048
  9. STAGID [Concomitant]
     Dosage: 700 MG, 2X/DAY
     Route: 048

REACTIONS (3)
  - ASTHENIA [None]
  - DRUG INTERACTION [None]
  - FALL [None]
